FAERS Safety Report 6471731-7 (Version None)
Quarter: 2009Q4

REPORT INFORMATION
  Report Type: 
  Country: None (occurrence: None)
  Receive Date: 20091201
  Receipt Date: 20091119
  Transmission Date: 20100525
  Serious: Yes (Death, Life-Threatening, Hospitalization)
  Sender: FDA-Public Use
  Company Number: CLOF-1000730

PATIENT
  Age: 7 Year
  Sex: Female
  Weight: 28.7 kg

DRUGS (21)
  1. CLOLAR [Suspect]
     Indication: ACUTE LYMPHOCYTIC LEUKAEMIA
     Dosage: 20 MG/M2, QDX3, INTRAVENOUS, 20 MG/M2, QDX3, INTRAVENOUS
     Route: 042
     Dates: start: 20090219, end: 20090221
  2. CLOLAR [Suspect]
     Indication: ACUTE LYMPHOCYTIC LEUKAEMIA
     Dosage: 20 MG/M2, QDX3, INTRAVENOUS, 20 MG/M2, QDX3, INTRAVENOUS
     Route: 042
     Dates: start: 20090226, end: 20090228
  3. CYCLOPHOSPHAMIDE [Suspect]
     Indication: ACUTE LYMPHOCYTIC LEUKAEMIA
     Dosage: 200 MG/M2, QD, INTRAVENOUS, 400 MG/M2, QD, INTRAVENOUS, 400 MG/M2, QD, INTRAVENOUS
     Route: 042
     Dates: start: 20090218, end: 20090219
  4. CYCLOPHOSPHAMIDE [Suspect]
     Indication: ACUTE LYMPHOCYTIC LEUKAEMIA
     Dosage: 200 MG/M2, QD, INTRAVENOUS, 400 MG/M2, QD, INTRAVENOUS, 400 MG/M2, QD, INTRAVENOUS
     Route: 042
     Dates: start: 20090220, end: 20090221
  5. CYCLOPHOSPHAMIDE [Suspect]
     Indication: ACUTE LYMPHOCYTIC LEUKAEMIA
     Dosage: 200 MG/M2, QD, INTRAVENOUS, 400 MG/M2, QD, INTRAVENOUS, 400 MG/M2, QD, INTRAVENOUS
     Route: 042
     Dates: start: 20090226, end: 20090228
  6. VORICONAZOLE [Concomitant]
  7. HYDROCORTONE [Concomitant]
  8. HYDROCORTONE [Concomitant]
  9. ACETAMINOPHEN [Concomitant]
  10. ACETAMINOPHEN [Concomitant]
  11. ACETAMINOPHEN [Concomitant]
  12. ALLOPURINOL [Concomitant]
  13. ALTEPLASE (ALTEPLASE) [Concomitant]
  14. AMPHOTERICIN B, LIPOSOME (AMPHOTERICIN B, LIPOSOME) [Concomitant]
  15. BIOTENE (GLUCOSE OXIDASE) [Concomitant]
  16. DIPHENHYDRAMINE HCL [Concomitant]
  17. LIDOCAINE W (PRILOCAINE) [Concomitant]
  18. LORAZEPAM [Concomitant]
  19. NALBUPHINE HCL [Concomitant]
  20. ONDANSETRON [Concomitant]
  21. RANITIDINE HCL [Concomitant]

REACTIONS (10)
  - ACUTE LYMPHOCYTIC LEUKAEMIA [None]
  - FEBRILE NEUTROPENIA [None]
  - FUNGAL INFECTION [None]
  - HEPATIC INFECTION FUNGAL [None]
  - HYPOKALAEMIA [None]
  - KIDNEY INFECTION [None]
  - LEUKOPENIA [None]
  - LYMPHOPENIA [None]
  - MALIGNANT NEOPLASM PROGRESSION [None]
  - THROMBOCYTOPENIA [None]
